FAERS Safety Report 4287339-8 (Version None)
Quarter: 2004Q1

REPORT INFORMATION
  Report Type: 
  Country: None (occurrence: None)
  Receive Date: 20040205
  Receipt Date: 20031015
  Transmission Date: 20041129
  Serious: Yes (Hospitalization)
  Sender: FDA-Public Use
  Company Number: B01200302550

PATIENT
  Age: 66 Year
  Sex: Male

DRUGS (2)
  1. CLOPIDOGREL BISULFATE [Suspect]
     Indication: ISCHAEMIC STROKE
     Dosage: 75 MG QD / 75 MG QD ORAL
     Route: 048
     Dates: start: 20011113
  2. CLOPIDOGREL BISULFATE [Suspect]
     Indication: TRANSIENT ISCHAEMIC ATTACK
     Dosage: 75 MG QD / 75 MG QD ORAL
     Route: 048
     Dates: start: 20011113

REACTIONS (7)
  - CARCINOMA [None]
  - GASTRITIS [None]
  - HAEMATURIA [None]
  - HELICOBACTER INFECTION [None]
  - IATROGENIC INJURY [None]
  - PROSTATE CANCER [None]
  - URINARY TRACT DISORDER [None]
